FAERS Safety Report 13295612 (Version 1)
Quarter: 2017Q1

REPORT INFORMATION
  Report Type: Spontaneous
  Country: IN (occurrence: IN)
  Receive Date: 20170303
  Receipt Date: 20170303
  Transmission Date: 20170428
  Serious: Yes (Hospitalization)
  Sender: FDA-Public Use
  Company Number: PHHY2017IN026693

PATIENT
  Age: 10 Year
  Sex: Female

DRUGS (11)
  1. IMMUNOGLOBULIN I.V [Concomitant]
     Active Substance: HUMAN IMMUNOGLOBULIN G
     Dosage: 5 G, ON 6TH DAY
     Route: 042
  2. WYSOLONE [Concomitant]
     Active Substance: PREDNISOLONE
     Indication: PRODUCT USED FOR UNKNOWN INDICATION
     Dosage: 30 MG, QD
     Route: 065
  3. RITUXIMAB [Concomitant]
     Active Substance: RITUXIMAB
     Indication: PRODUCT USED FOR UNKNOWN INDICATION
     Dosage: 600 MG, (600 MG IN 500 ML NORMAL SALINE)
     Route: 065
  4. NORMAL SALINE [Concomitant]
     Active Substance: SODIUM CHLORIDE
     Indication: PRODUCT USED FOR UNKNOWN INDICATION
     Dosage: 500 ML, UNK
     Route: 065
  5. OLANZAPINE. [Concomitant]
     Active Substance: OLANZAPINE
     Indication: PRODUCT USED FOR UNKNOWN INDICATION
     Dosage: 2.5 MG, (1/2 -0-1 )
     Route: 065
  6. IMMUNOGLOBULIN I.V [Concomitant]
     Active Substance: HUMAN IMMUNOGLOBULIN G
     Indication: PRODUCT USED FOR UNKNOWN INDICATION
     Dosage: 10 G, UNK
     Route: 042
  7. UDILIV [Concomitant]
     Indication: PRODUCT USED FOR UNKNOWN INDICATION
     Dosage: 300 MG, BID
     Route: 065
  8. CARNITINE [Concomitant]
     Active Substance: CARNITINE
     Indication: BLOOD PHOSPHORUS
     Dosage: 330 MG, BID
     Route: 065
  9. PANTOPRAZOLE [Concomitant]
     Active Substance: PANTOPRAZOLE SODIUM
     Indication: PRODUCT USED FOR UNKNOWN INDICATION
     Dosage: 20 MG, QD
     Route: 065
  10. CLONAZEPAM. [Suspect]
     Active Substance: CLONAZEPAM
     Indication: ENCEPHALITIS
     Dosage: 0.25 MG, BID
     Route: 048
  11. SERENASE [Concomitant]
     Active Substance: HALOPERIDOL
     Indication: PRODUCT USED FOR UNKNOWN INDICATION
     Dosage: 0.5 MG, BID
     Route: 065

REACTIONS (2)
  - Product use issue [Unknown]
  - Seizure [Recovering/Resolving]

NARRATIVE: CASE EVENT DATE: 20160227
